FAERS Safety Report 6973308-3 (Version None)
Quarter: 2010Q3

REPORT INFORMATION
  Report Type: 
  Country: None (occurrence: None)
  Receive Date: 20100907
  Receipt Date: 20100824
  Transmission Date: 20110219
  Serious: Yes (Other)
  Sender: FDA-Public Use
  Company Number: IDA-00425

PATIENT
  Age: 43 Year
  Sex: Female
  Weight: 124.3 kg

DRUGS (21)
  1. LISINOPRIL [Suspect]
     Indication: BLOOD PRESSURE
     Dosage: DAILY DOSE: 10 MG DAILY; ORAL FOMULATION: TABLET
     Route: 048
  2. OMEPRAZOLE [Suspect]
     Indication: GASTROOESOPHAGEAL REFLUX DISEASE
     Dosage: DAILY DOSE: 40 MG DAILY, ORAL
     Route: 048
  3. PROPRANOLOL [Suspect]
     Indication: BLOOD PRESSURE
     Dosage: DAILY DOSE: 20 MG BID, ORAL FORMULATION: TABLET
     Route: 048
  4. LIDODERM [Suspect]
     Indication: MYALGIA
     Dosage: DAILY DOSE: 3 PATCHES, 12 HOURS ON IT AND 12 HOURS OFF IT; TRANSDERMAL FORMULATION: PATCH
     Route: 062
  5. LYRICA [Suspect]
     Indication: FIBROMYALGIA
     Dosage: DAILY DOSE: 150 MG TID/150 MG QID; ORAL
     Route: 048
  6. FLUTICASONE PROPIONATE [Suspect]
     Dosage: DAILY DOSE: NASL FORMULATION: SPRAY NASAL
     Route: 045
     Dates: start: 20100101
  7. SIMVASTATIN [Suspect]
     Indication: BLOOD CHOLESTEROL
     Dosage: DAILY DOSE: 40 MG DAILY, ORAL
     Route: 048
  8. MELOXICAM [Suspect]
     Indication: PAIN
     Dosage: DAILY DOSE: 15 MG BID; ORAL
     Route: 048
  9. CETIRIZINE HCL [Suspect]
     Indication: HYPERSENSITIVITY
     Dosage: DAILY DOSE: 10 MG DAILY, ORAL FORMULATION: TABLET
     Route: 048
  10. ASPIRIN [Suspect]
     Dosage: DAILY DOSE: 81 MG DAILY, ORAL
     Route: 048
  11. LEVOTHYROXINE SODIUM [Suspect]
     Dosage: DAILY DOSE: 50 UG DAILY, ORAL
     Route: 048
  12. TEGRETOL [Suspect]
     Indication: PERSONALITY DISORDER
     Dosage: DAILY DOSE: 400 MG QAM/800 MG HS
  13. PROVIGIL [Suspect]
     Dosage: DAILY DOSE: 200 MG DAILY/DOSE TEXT: ONE AND HALF TABLETS DAILY, ORAL
     Route: 048
  14. METHOCARBAMOL [Suspect]
     Indication: PAIN
     Dosage: DAILY DOSE: 500 MG BID, ORAL
     Route: 048
  15. BACLOFEN [Suspect]
     Indication: RESTLESS LEGS SYNDROME
     Dosage: DAILY DOSE: 20 MG TID, ORAL
     Route: 048
  16. METHADOSE [Suspect]
     Indication: PAIN
     Dosage: DAILY DOSE: 10 MG PID, ORAL
     Route: 048
  17. CYMBALTA [Suspect]
     Indication: DEPRESSION
     Dosage: DAILY DOSE: 60 MG BID, ORAL FORMULATION: CAPSULE
     Route: 048
  18. (INSULIN DETEMIR) [Suspect]
     Indication: DIABETES MELLITUS
     Dosage: DAILY DOSE: 47 IU QAM/47 IU HS; SUBCUTANEOUS FORMULATION; INJECTION
     Route: 058
  19. MIRALAX [Suspect]
     Indication: CONSTIPATION
     Dosage: DAILY DOSE: 17 G DAILY, ORAL
     Route: 048
  20. (FISH OIL) [Suspect]
     Indication: PRODUCT USED FOR UNKNOWN INDICATION
     Dosage: DAILY
  21. VITAMIN E [Suspect]
     Dosage: DAILY

REACTIONS (3)
  - CONVULSION [None]
  - FATIGUE [None]
  - FIBROMYALGIA [None]
